FAERS Safety Report 5029214-7 (Version None)
Quarter: 2006Q2

REPORT INFORMATION
  Report Type: 
  Country: None (occurrence: None)
  Receive Date: 20060619
  Receipt Date: 20060609
  Transmission Date: 20061013
  Serious: Yes (Hospitalization)
  Sender: FDA-Public Use
  Company Number: US-AMGEN-US182402

PATIENT
  Sex: Female

DRUGS (9)
  1. ARANESP [Suspect]
     Route: 058
  2. DEMADEX [Concomitant]
  3. NORVASC [Concomitant]
  4. COREG [Concomitant]
  5. ENALAPRIL [Concomitant]
  6. ROCALTROL [Concomitant]
  7. ZOCOR [Concomitant]
  8. PROTONIX [Concomitant]
  9. IRON [Concomitant]

REACTIONS (4)
  - DIALYSIS [None]
  - HAEMOGLOBIN DECREASED [None]
  - IRON DEFICIENCY [None]
  - RENAL IMPAIRMENT [None]
